FAERS Safety Report 6084456-7 (Version None)
Quarter: 2009Q1

REPORT INFORMATION
  Report Type: 
  Country: None (occurrence: None)
  Receive Date: 20090219
  Receipt Date: 20090211
  Transmission Date: 20090719
  Serious: Yes (Other)
  Sender: FDA-Public Use
  Company Number: US-PFIZER INC-2009170469

PATIENT
  Age: 70 Year

DRUGS (1)
  1. NICOTROL [Suspect]

REACTIONS (3)
  - CARDIAC DISORDER [None]
  - GENERAL PHYSICAL HEALTH DETERIORATION [None]
  - NICOTINE DEPENDENCE [None]
